FAERS Safety Report 8379747-0 (Version None)
Quarter: 2012Q2

REPORT INFORMATION
  Report Type: 
  Country: None (occurrence: None)
  Receive Date: 20120523
  Receipt Date: 20120517
  Transmission Date: 20120825
  Serious: Yes (Other)
  Sender: FDA-Public Use
  Company Number: PHEH2012US010388

PATIENT
  Sex: Male

DRUGS (1)
  1. AFINITOR [Suspect]
     Indication: RENAL CANCER
     Dosage: 1 DF, QD
     Route: 048
     Dates: start: 20120316

REACTIONS (3)
  - CEREBROVASCULAR ACCIDENT [None]
  - NEOPLASM PROGRESSION [None]
  - NEOPLASM MALIGNANT [None]
